FAERS Safety Report 25224014 (Version 1)
Quarter: 2025Q2

REPORT INFORMATION
  Report Type: Spontaneous
  Country: IT (occurrence: IT)
  Receive Date: 20250422
  Receipt Date: 20250422
  Transmission Date: 20250716
  Serious: Yes (Hospitalization, Other)
  Sender: HIKMA
  Company Number: IT-MLMSERVICE-20250403-PI468276-00270-1

PATIENT
  Age: 37 Year
  Sex: Male

DRUGS (2)
  1. METHYLPREDNISOLONE [Suspect]
     Active Substance: METHYLPREDNISOLONE
     Indication: Myelin oligodendrocyte glycoprotein antibody-associated disease
     Dosage: 1000 MILLIGRAM
     Route: 042
  2. PREDNISONE [Concomitant]
     Active Substance: PREDNISONE
     Indication: Myelin oligodendrocyte glycoprotein antibody-associated disease
     Dosage: 50 MILLIGRAM, TAPERING OF PREDNISONE OVER 1 MONTH.
     Route: 048

REACTIONS (2)
  - Cerebral venous thrombosis [Recovered/Resolved]
  - Seizure [Recovered/Resolved]
